FAERS Safety Report 21270494 (Version 5)
Quarter: 2022Q3

REPORT INFORMATION
  Report Type: Report from Study
  Country: AR (occurrence: None)
  Receive Date: 20220830
  Receipt Date: 20220928
  Transmission Date: 20221027
  Serious: Yes (Hospitalization)
  Sender: FDA-Public Use
  Company Number: AR-ROCHE-3165368

PATIENT
  Age: 76 Year
  Sex: Female
  Weight: 82 kg

DRUGS (17)
  1. RITUXIMAB [Suspect]
     Active Substance: RITUXIMAB
     Indication: B-cell lymphoma
     Dosage: DATE OF MOST RECENT DOSE 724 MG OF STUDY DRUG PRIOR TO SAE 16/AUG/2022
     Route: 041
     Dates: start: 20220803
  2. GEMCITABINE [Suspect]
     Active Substance: GEMCITABINE
     Indication: B-cell lymphoma
     Dosage: DATE OF MOST RECENT DOSE 1930 MG OF STUDY DRUG PRIOR TO SAE 16/AUG/2022
     Route: 042
     Dates: start: 20220803
  3. OXALIPLATIN [Suspect]
     Active Substance: OXALIPLATIN
     Indication: B-cell lymphoma
     Dosage: DATE OF MOST RECENT DOSE 193 MG OF STUDY DRUG PRIOR TO SAE 16/AUG/2022
     Route: 042
  4. FILGRASTIM [Concomitant]
     Active Substance: FILGRASTIM
     Indication: Leukopenia
     Dosage: START DATE: 20/AUG/2022 STOP DATE: 20/AUG/2022
  5. FILGRASTIM [Concomitant]
     Active Substance: FILGRASTIM
     Indication: Neutropenia
     Route: 048
     Dates: start: 20220810, end: 20220814
  6. LEVOTHYROXINE [Concomitant]
     Active Substance: LEVOTHYROXINE
     Indication: Hypothyroidism
     Route: 048
     Dates: start: 1992
  7. RAQUIFEROL [Concomitant]
     Indication: Osteoporosis prophylaxis
     Dates: start: 2012
  8. CELECOXIB [Concomitant]
     Active Substance: CELECOXIB
  9. ROSUVASTATIN [Concomitant]
     Active Substance: ROSUVASTATIN
     Dates: start: 2010
  10. FUROSEMIDE [Concomitant]
     Active Substance: FUROSEMIDE
     Indication: Oedema peripheral
     Dates: start: 20220804, end: 20220804
  11. OMEPRAZOLE [Concomitant]
     Active Substance: OMEPRAZOLE
     Indication: Gastritis prophylaxis
     Dates: start: 20220804
  12. FLUCONAZOLE [Concomitant]
     Active Substance: FLUCONAZOLE
     Indication: Infection prophylaxis
     Dates: start: 20220804
  13. APREPITANT [Concomitant]
     Active Substance: APREPITANT
     Indication: Prophylaxis of nausea and vomiting
     Dates: start: 20220804
  14. ONDANSETRON [Concomitant]
     Active Substance: ONDANSETRON
     Indication: Prophylaxis of nausea and vomiting
     Dates: start: 20220804
  15. CIPROFLOXACIN [Concomitant]
     Active Substance: CIPROFLOXACIN
     Dosage: START DATE 22/AUG/2022
  16. MINOCICLINA [Concomitant]
     Dosage: START DATE 22/AUG/2022
  17. CHOLECALCIFEROL [Concomitant]
     Active Substance: CHOLECALCIFEROL
     Indication: Osteoporosis prophylaxis
     Dates: start: 2000

REACTIONS (1)
  - Thrombophlebitis [Recovered/Resolved]

NARRATIVE: CASE EVENT DATE: 20220819
